FAERS Safety Report 7919972-3 (Version None)
Quarter: 2011Q4

REPORT INFORMATION
  Report Type: 
  Country: None (occurrence: None)
  Receive Date: 20111117
  Receipt Date: 20111115
  Transmission Date: 20120403
  Serious: Yes (Other)
  Sender: FDA-Public Use
  Company Number: US-B.I. PHARMACEUTICALS,INC./RIDGEFIELD-2011-BP-26279BP

PATIENT
  Age: 7 Decade
  Sex: Male

DRUGS (3)
  1. SPIRIVA [Suspect]
  2. DULERA ORAL INHALATION [Suspect]
     Indication: ASTHMA
     Route: 055
  3. DULERA ORAL INHALATION [Suspect]
     Indication: CHRONIC OBSTRUCTIVE PULMONARY DISEASE

REACTIONS (1)
  - PHARYNGEAL HAEMORRHAGE [None]
